FAERS Safety Report 4764451-8 (Version None)
Quarter: 2005Q3

REPORT INFORMATION
  Report Type: 
  Country: None (occurrence: None)
  Receive Date: 20050909
  Receipt Date: 20050831
  Transmission Date: 20060218
  Serious: Yes (Hospitalization)
  Sender: FDA-Public Use
  Company Number: PHBS2005GT12640

PATIENT
  Age: 62 Year
  Sex: Male

DRUGS (3)
  1. ZELMAC [Suspect]
     Indication: CONSTIPATION
     Dosage: 6 MG, BID
     Route: 048
     Dates: start: 20050822
  2. TENORMIN [Concomitant]
     Dosage: 25 MG, QD
     Route: 048
  3. OMEPRAZOLE [Concomitant]
     Dosage: 20 MG, QD
     Route: 048

REACTIONS (7)
  - ABNORMAL BEHAVIOUR [None]
  - AMOEBIC DYSENTERY [None]
  - BLOOD CALCIUM DECREASED [None]
  - BLOOD CHLORIDE DECREASED [None]
  - BLOOD SODIUM DECREASED [None]
  - STOOL ANALYSIS ABNORMAL [None]
  - TYPHOID FEVER [None]
